FAERS Safety Report 23105040 (Version 1)
Quarter: 2023Q4

REPORT INFORMATION
  Report Type: Spontaneous
  Country: BE (occurrence: BE)
  Receive Date: 20231025
  Receipt Date: 20231025
  Transmission Date: 20240110
  Serious: Yes (Hospitalization)
  Sender: FDA-Public Use
  Company Number: BE-ROCHE-3227469

PATIENT
  Age: 67 Year
  Sex: Female
  Weight: 67 kg

DRUGS (15)
  1. NINTEDANIB ESYLATE [Suspect]
     Active Substance: NINTEDANIB ESYLATE
     Indication: Idiopathic pulmonary fibrosis
     Dosage: ON 24/OCT/2022, RECEIVED THE MOST RECENT DOSE 100MG PRIOR TO AE/SAE
     Route: 048
     Dates: start: 20210423
  2. PIRFENIDONE [Suspect]
     Active Substance: PIRFENIDONE
     Indication: Idiopathic pulmonary fibrosis
     Dosage: 267.000MG
     Route: 048
     Dates: start: 20220520
  3. Antistax [Concomitant]
     Indication: Prophylaxis
     Route: 065
     Dates: start: 2010
  4. ASPIRIN [Concomitant]
     Active Substance: ASPIRIN
     Indication: Prophylaxis
     Dosage: 80.000MG QD
     Route: 065
     Dates: start: 202106
  5. CALCIUM CARBONATE [Concomitant]
     Active Substance: CALCIUM CARBONATE
     Indication: Prophylaxis
     Dosage: 1.250G QD
     Route: 065
     Dates: start: 202109
  6. CETIRIZINE HYDROCHLORIDE [Concomitant]
     Active Substance: CETIRIZINE HYDROCHLORIDE
     Indication: Prophylaxis
     Dosage: 10.000MG QD
     Route: 065
     Dates: start: 202201
  7. D VITAL FORTE [Concomitant]
     Indication: Prophylaxis
     Dosage: 1.000G QD
     Route: 065
     Dates: start: 2005
  8. L-Glutamine [Concomitant]
     Indication: Prophylaxis
     Dosage: QD
     Route: 065
     Dates: start: 202203
  9. MELATONIN [Concomitant]
     Active Substance: MELATONIN
     Indication: Prophylaxis
     Dosage: UNK UNK, QD
     Route: 065
     Dates: start: 202112
  10. PNEUMOVAX 23 [Concomitant]
     Active Substance: PNEUMOCOCCAL VACCINE, POLYVALENT 23
     Indication: Product used for unknown indication
     Dosage: 0.500DF
     Route: 065
  11. PRAVASTATIN [Concomitant]
     Active Substance: PRAVASTATIN
     Indication: Prophylaxis
     Dosage: 20.000MG QD
     Route: 065
     Dates: start: 202110
  12. PREVNAR 13 [Concomitant]
     Active Substance: PNEUMOCOCCAL 13-VALENT CONJUGATE VACCINE
     Indication: Prophylaxis
     Dosage: 0.500DF
     Route: 065
  13. TRISYN [Concomitant]
     Indication: Prophylaxis
     Route: 065
     Dates: start: 202203
  14. VENLAFAXINE [Concomitant]
     Active Substance: VENLAFAXINE HYDROCHLORIDE
     Indication: Prophylaxis
     Dosage: 37.500MG QD
     Route: 065
     Dates: start: 2005
  15. ZOLPIDEM [Concomitant]
     Active Substance: ZOLPIDEM TARTRATE
     Indication: Prophylaxis
     Dosage: 10.000MG QD
     Route: 065
     Dates: start: 2005

REACTIONS (1)
  - Pneumonia [Recovered/Resolved]

NARRATIVE: CASE EVENT DATE: 20221122
